FAERS Safety Report 4549411-4 (Version None)
Quarter: 2005Q1

REPORT INFORMATION
  Report Type: 
  Country: None (occurrence: None)
  Receive Date: 20050111
  Receipt Date: 20050106
  Transmission Date: 20050727
  Serious: Yes (Death)
  Sender: FDA-Public Use
  Company Number: 200510054JP

PATIENT
  Age: 79 Year
  Sex: Male

DRUGS (1)
  1. LASIX [Suspect]
     Route: 048
     Dates: start: 20010401, end: 20010601

REACTIONS (3)
  - OCULOMUCOCUTANEOUS SYNDROME [None]
  - RENAL FAILURE [None]
  - STEVENS-JOHNSON SYNDROME [None]
